FAERS Safety Report 6359698-3 (Version None)
Quarter: 2009Q3

REPORT INFORMATION
  Report Type: 
  Country: None (occurrence: None)
  Receive Date: 20090917
  Receipt Date: 20090916
  Transmission Date: 20100115
  Serious: Yes (Other)
  Sender: FDA-Public Use
  Company Number: US-PFIZER INC-2009249319

PATIENT
  Sex: Male
  Weight: 77.098 kg

DRUGS (3)
  1. GEODON [Suspect]
     Indication: DEPRESSION
     Dosage: 20 MG, 3X/DAY
     Route: 048
     Dates: start: 20090701
  2. LOVASTATIN [Concomitant]
     Indication: BLOOD CHOLESTEROL INCREASED
  3. LEVOTHYROXINE SODIUM [Concomitant]
     Indication: THYROID DISORDER

REACTIONS (2)
  - HEADACHE [None]
  - MUSCULOSKELETAL PAIN [None]
